FAERS Safety Report 6087947-8 (Version None)
Quarter: 2009Q1

REPORT INFORMATION
  Report Type: 
  Country: None (occurrence: None)
  Receive Date: 20090219
  Receipt Date: 20090217
  Transmission Date: 20090719
  Serious: Yes (Hospitalization)
  Sender: FDA-Public Use
  Company Number: 1000004790

PATIENT
  Age: 36 Year
  Sex: Female

DRUGS (4)
  1. CELEXA [Suspect]
     Indication: DEPRESSION
     Dosage: 20 MG (20 MG, 1 IN 1 D), ORAL; 40 MG (40 MG, 1 IN 1 D), ORAL
     Route: 048
     Dates: start: 20090114
  2. CELEXA [Suspect]
     Indication: DEPRESSION
     Dosage: 20 MG (20 MG, 1 IN 1 D), ORAL; 40 MG (40 MG, 1 IN 1 D), ORAL
     Route: 048
     Dates: start: 20090115
  3. KLONOPIN [Concomitant]
  4. CONTRACEPTIVE (NOS) [Concomitant]

REACTIONS (1)
  - COLITIS ISCHAEMIC [None]
